FAERS Safety Report 5385584-1 (Version None)
Quarter: 2007Q3

REPORT INFORMATION
  Report Type: 
  Country: None (occurrence: None)
  Receive Date: 20070712
  Receipt Date: 20070702
  Transmission Date: 20080115
  Serious: Yes (Other)
  Sender: FDA-Public Use
  Company Number: ES-JNJFOC-20070600950

PATIENT
  Age: 61 Year
  Sex: Male
  Weight: 85 kg

DRUGS (18)
  1. REMICADE [Suspect]
     Route: 042
  2. REMICADE [Suspect]
     Route: 042
  3. REMICADE [Suspect]
     Route: 042
  4. REMICADE [Suspect]
     Route: 042
  5. REMICADE [Suspect]
     Route: 042
  6. REMICADE [Suspect]
     Route: 042
  7. REMICADE [Suspect]
     Route: 042
  8. REMICADE [Suspect]
     Route: 042
  9. REMICADE [Suspect]
     Route: 042
  10. REMICADE [Suspect]
     Route: 042
  11. REMICADE [Suspect]
     Indication: RHEUMATOID ARTHRITIS
     Route: 042
  12. METHYLPREDNISOLONE [Concomitant]
     Route: 048
  13. METHYLPREDNISOLONE [Concomitant]
     Indication: PREMEDICATION
     Route: 048
  14. POLARAMINE [Concomitant]
     Indication: PREMEDICATION
  15. PREVENCOR [Concomitant]
     Route: 048
  16. ULCERAL [Concomitant]
     Route: 048
  17. ARAVA [Concomitant]
     Dosage: 20
     Route: 048
  18. ALL OTHER THERAPEUTIC PRODUCTS [Concomitant]
     Indication: PSYCHIATRIC SYMPTOM

REACTIONS (6)
  - CYANOSIS [None]
  - HYPERSENSITIVITY [None]
  - HYPOXIA [None]
  - INFUSION RELATED REACTION [None]
  - MALAISE [None]
  - TREMOR [None]
